FAERS Safety Report 16339015 (Version 6)
Quarter: 2020Q1

REPORT INFORMATION
  Report Type: Report from Study
  Country: US (occurrence: US)
  Receive Date: 20190521
  Receipt Date: 20200218
  Transmission Date: 20200409
  Serious: Yes (Other)
  Sender: FDA-Public Use
  Company Number: PHEH2019US021374

PATIENT
  Sex: Female

DRUGS (1)
  1. GILENYA [Suspect]
     Active Substance: FINGOLIMOD HYDROCHLORIDE
     Indication: MULTIPLE SCLEROSIS
     Dosage: 0.5 MG, QD
     Route: 048
     Dates: start: 20190507

REACTIONS (9)
  - Abdominal discomfort [Unknown]
  - Depression [Unknown]
  - Stress [Unknown]
  - Product dose omission [Unknown]
  - Back pain [Unknown]
  - Memory impairment [Unknown]
  - Fatigue [Unknown]
  - Hypoaesthesia [Recovering/Resolving]
  - Multiple sclerosis relapse [Unknown]
